FAERS Safety Report 5897860-4 (Version None)
Quarter: 2008Q3

REPORT INFORMATION
  Report Type: 
  Country: None (occurrence: None)
  Receive Date: 20080924
  Receipt Date: 20080924
  Transmission Date: 20090109
  Serious: No
  Sender: FDA-Public Use
  Company Number: None

PATIENT
  Age: 75 Year
  Sex: Male

DRUGS (1)
  1. METOPROLOL TARTRATE [Suspect]
     Dosage: 100 MG BID PO
     Route: 048
     Dates: start: 20080506, end: 20080531

REACTIONS (1)
  - BRADYCARDIA [None]
